FAERS Safety Report 25550068 (Version 2)
Quarter: 2025Q3

REPORT INFORMATION
  Report Type: Spontaneous
  Country: US (occurrence: US)
  Receive Date: 20250714
  Receipt Date: 20250721
  Transmission Date: 20251021
  Serious: No
  Sender: IPSEN BIOPHARMACEUTICALS, INC.
  Company Number: US-IPSEN Group, Research and Development-2025-16825

PATIENT
  Sex: Female

DRUGS (7)
  1. IQIRVO [Suspect]
     Active Substance: ELAFIBRANOR
     Indication: Primary biliary cholangitis
  2. IQIRVO [Suspect]
     Active Substance: ELAFIBRANOR
  3. URSODIOL [Concomitant]
     Active Substance: URSODIOL
  4. REPATHA [Concomitant]
     Active Substance: EVOLOCUMAB
  5. FENOFIBRATE [Concomitant]
     Active Substance: FENOFIBRATE
  6. ROSUVASTATIN CALCIUM [Concomitant]
     Active Substance: ROSUVASTATIN CALCIUM
  7. VITAMIN D2 [Concomitant]
     Active Substance: ERGOCALCIFEROL

REACTIONS (3)
  - Jaundice [Unknown]
  - Hepatic enzyme abnormal [Unknown]
  - Product ineffective [Unknown]
